FAERS Safety Report 7360110-6 (Version None)
Quarter: 2011Q1

REPORT INFORMATION
  Report Type: 
  Country: None (occurrence: None)
  Receive Date: 20110318
  Receipt Date: 20110308
  Transmission Date: 20110831
  Serious: Yes (Death, Hospitalization)
  Sender: FDA-Public Use
  Company Number: 186019

PATIENT
  Age: 62 Year
  Sex: Female

DRUGS (15)
  1. AVONEX [Suspect]
     Indication: MULTIPLE SCLEROSIS
     Route: 030
     Dates: start: 20010114
  2. ASPIRIN [Concomitant]
  3. ZOCOR [Concomitant]
  4. MULTI-VITAMIN [Concomitant]
  5. ALTACE [Concomitant]
  6. SYMMETREL [Concomitant]
  7. CREON [Concomitant]
  8. NICOTINE [Concomitant]
  9. TENORMIN [Concomitant]
  10. NEURONTIN [Concomitant]
  11. FISH OIL [Concomitant]
  12. PLAVIX [Concomitant]
  13. PERCOCET [Concomitant]
  14. LIORESAL [Concomitant]
  15. DETROL [Concomitant]

REACTIONS (7)
  - WOUND [None]
  - MYOCARDIAL INFARCTION [None]
  - HAEMORRHAGE [None]
  - ARTERIAL OCCLUSIVE DISEASE [None]
  - CORONARY ARTERY STENOSIS [None]
  - CHRONIC OBSTRUCTIVE PULMONARY DISEASE [None]
  - AORTIC OCCLUSION [None]
